FAERS Safety Report 12606286 (Version 1)
Quarter: 2016Q3

REPORT INFORMATION
  Report Type: Spontaneous
  Country: GB (occurrence: GB)
  Receive Date: 20160729
  Receipt Date: 20160729
  Transmission Date: 20161109
  Serious: Yes (Other)
  Sender: FDA-Public Use
  Company Number: GB-ACTAVISPR-2016-16522

PATIENT
  Sex: Male

DRUGS (4)
  1. PERGOLIDE [Suspect]
     Active Substance: PERGOLIDE
     Indication: PARKINSON^S DISEASE
     Dosage: UNK
     Route: 065
  2. LEVODOPA [Suspect]
     Active Substance: LEVODOPA
     Indication: PARKINSON^S DISEASE
     Dosage: UNK
     Route: 065
  3. SELEGILINE (UNKNOWN) [Suspect]
     Active Substance: SELEGILINE
     Indication: PARKINSON^S DISEASE
     Dosage: UNK
     Route: 065
  4. CABERGOLINE (UNKNOWN) [Suspect]
     Active Substance: CABERGOLINE
     Indication: PARKINSON^S DISEASE
     Dosage: UNK
     Route: 065

REACTIONS (11)
  - Hallucination [Unknown]
  - Compulsive sexual behaviour [Unknown]
  - Anxiety [Unknown]
  - Fatigue [Unknown]
  - Drug dependence [Unknown]
  - Dyskinesia [Unknown]
  - Withdrawal syndrome [Unknown]
  - On and off phenomenon [Unknown]
  - Depression [Unknown]
  - Impulse-control disorder [Unknown]
  - Dysphoria [Unknown]
